FAERS Safety Report 19190271 (Version 9)
Quarter: 2021Q4

REPORT INFORMATION
  Report Type: Spontaneous
  Country: GB (occurrence: GB)
  Receive Date: 20210428
  Receipt Date: 20211105
  Transmission Date: 20220303
  Serious: Yes (Hospitalization, Other)
  Sender: FDA-Public Use
  Company Number: GB-ROCHE-2081607

PATIENT
  Age: 51 Year
  Sex: Female

DRUGS (70)
  1. DOCETAXEL [Suspect]
     Active Substance: DOCETAXEL
     Indication: Breast cancer metastatic
     Dosage: 132 MG
     Route: 042
     Dates: start: 20150925, end: 20151016
  2. DOCETAXEL [Suspect]
     Active Substance: DOCETAXEL
     Indication: HER2 positive breast cancer
     Dosage: 108 MG,UNK
     Route: 042
     Dates: start: 20151016, end: 20160108
  3. TRASTUZUMAB [Suspect]
     Active Substance: TRASTUZUMAB
     Indication: Breast cancer metastatic
     Dosage: 600 MG,QD
     Route: 042
     Dates: start: 20150924, end: 20150924
  4. TRASTUZUMAB [Suspect]
     Active Substance: TRASTUZUMAB
     Dosage: 450 MG,Q3W
     Route: 042
     Dates: start: 20151016, end: 20151016
  5. TRASTUZUMAB [Suspect]
     Active Substance: TRASTUZUMAB
     Dosage: 260 MG, TIW
     Route: 042
     Dates: start: 20150924, end: 20150924
  6. TRASTUZUMAB [Suspect]
     Active Substance: TRASTUZUMAB
     Dosage: 260 MG, Q3W
     Route: 042
     Dates: start: 20150924, end: 20150924
  7. CAPECITABINE [Suspect]
     Active Substance: CAPECITABINE
     Indication: Breast cancer metastatic
     Dosage: 3500 MG
     Route: 048
     Dates: start: 20170905, end: 20171128
  8. CAPECITABINE [Suspect]
     Active Substance: CAPECITABINE
     Dosage: 1500 MG
     Route: 048
     Dates: start: 20171128, end: 20171219
  9. CAPECITABINE [Suspect]
     Active Substance: CAPECITABINE
     Dosage: 1000 MG
     Route: 048
     Dates: start: 20171128, end: 20171219
  10. CARBOPLATIN [Suspect]
     Active Substance: CARBOPLATIN
     Indication: Breast cancer metastatic
     Dosage: 240 MG, QW
     Route: 042
     Dates: start: 20181219, end: 20181219
  11. CARBOPLATIN [Suspect]
     Active Substance: CARBOPLATIN
     Dosage: 240 MG, QW
     Route: 042
     Dates: start: 20190117, end: 20190117
  12. CARBOPLATIN [Suspect]
     Active Substance: CARBOPLATIN
     Dosage: UNK
     Route: 065
  13. CARBOPLATIN [Suspect]
     Active Substance: CARBOPLATIN
     Dosage: 240 MG, QW
     Route: 042
     Dates: start: 20181219, end: 20190117
  14. ATEZOLIZUMAB [Suspect]
     Active Substance: ATEZOLIZUMAB
     Indication: Breast cancer metastatic
     Dosage: 1200 MG, Q3W, TARGETED THERAPY
     Route: 042
     Dates: start: 20170510, end: 20170510
  15. ATEZOLIZUMAB [Suspect]
     Active Substance: ATEZOLIZUMAB
     Dosage: 1200 MG, Q3W, TARGETED THERAPY
     Route: 042
     Dates: start: 20170628, end: 20170628
  16. ATEZOLIZUMAB [Suspect]
     Active Substance: ATEZOLIZUMAB
     Dosage: 1200 MG, TIW
     Route: 042
     Dates: start: 20170510, end: 20170628
  17. ATEZOLIZUMAB [Suspect]
     Active Substance: ATEZOLIZUMAB
     Dosage: 3600 MG
     Route: 042
  18. ERIBULIN [Suspect]
     Active Substance: ERIBULIN
     Indication: HER2 positive breast cancer
     Dosage: 2.5 MG
     Route: 042
     Dates: start: 20180822, end: 20181010
  19. ERIBULIN [Suspect]
     Active Substance: ERIBULIN
     Dosage: UNK
     Route: 065
  20. PERTUZUMAB [Suspect]
     Active Substance: PERTUZUMAB
     Indication: HER2 positive breast cancer
     Dosage: 840 MG, Q3W
     Route: 042
     Dates: start: 20150924, end: 20150924
  21. PERTUZUMAB [Suspect]
     Active Substance: PERTUZUMAB
     Indication: Breast cancer metastatic
     Dosage: 420 MG, Q3W
     Route: 042
     Dates: start: 20151016, end: 20170324
  22. PERTUZUMAB [Suspect]
     Active Substance: PERTUZUMAB
     Dosage: 420 MG, Q3W
     Route: 042
     Dates: start: 20170324, end: 20170324
  23. PERTUZUMAB [Suspect]
     Active Substance: PERTUZUMAB
     Dosage: 840 MG/M2, TIW
     Route: 042
     Dates: start: 20150924, end: 20150924
  24. PERTUZUMAB [Suspect]
     Active Substance: PERTUZUMAB
     Dosage: 420 MG, TIW
     Route: 042
     Dates: start: 20151016, end: 20170324
  25. NERATINIB [Suspect]
     Active Substance: NERATINIB
     Indication: Breast cancer metastatic
     Dosage: 240 MG, QD
     Route: 048
     Dates: start: 20180220, end: 20180717
  26. NERATINIB [Suspect]
     Active Substance: NERATINIB
     Dosage: UNK
     Route: 065
  27. ADO-TRASTUZUMAB EMTANSINE [Suspect]
     Active Substance: ADO-TRASTUZUMAB EMTANSINE
     Indication: Breast cancer metastatic
     Dosage: 260 MG, Q3W
     Route: 042
     Dates: start: 20150924, end: 20150924
  28. ADO-TRASTUZUMAB EMTANSINE [Suspect]
     Active Substance: ADO-TRASTUZUMAB EMTANSINE
     Indication: HER2 positive breast cancer
     Dosage: 450 MG, Q3W
     Route: 042
     Dates: start: 20151016, end: 20151016
  29. ADO-TRASTUZUMAB EMTANSINE [Suspect]
     Active Substance: ADO-TRASTUZUMAB EMTANSINE
     Dosage: 600 MG, Q3W
     Route: 042
  30. ADO-TRASTUZUMAB EMTANSINE [Suspect]
     Active Substance: ADO-TRASTUZUMAB EMTANSINE
     Dosage: 450 MG, TIW
     Route: 042
     Dates: start: 20151016
  31. AMITRIPTYLINE [Concomitant]
     Active Substance: AMITRIPTYLINE
     Indication: Neuropathy peripheral
     Dosage: 30 MG, QD
     Route: 048
     Dates: start: 201608
  32. AMITRIPTYLINE [Concomitant]
     Active Substance: AMITRIPTYLINE
     Dosage: 10 MG, TID
     Route: 048
     Dates: start: 201608
  33. AMOXICILLIN [Concomitant]
     Active Substance: AMOXICILLIN
     Indication: Upper respiratory tract infection
     Dosage: 1500 MG
     Route: 048
     Dates: start: 20160330
  34. AMOXICILLIN [Concomitant]
     Active Substance: AMOXICILLIN
     Dosage: 500 MG, TID
     Route: 048
     Dates: start: 20160330, end: 20160406
  35. CITALOPRAM [Concomitant]
     Active Substance: CITALOPRAM HYDROBROMIDE
     Indication: Product used for unknown indication
     Dosage: 20 MG, QD
     Route: 048
  36. HUMALOG [Concomitant]
     Active Substance: INSULIN LISPRO
     Indication: Product used for unknown indication
     Dosage: UNK UNK, QD (3 OT, QD (16 UNIT))
     Route: 058
  37. HUMALOG [Concomitant]
     Active Substance: INSULIN LISPRO
     Indication: Product used for unknown indication
     Dosage: 16 DF, QD
     Route: 058
  38. HUMALOG [Concomitant]
     Active Substance: INSULIN LISPRO
     Route: 058
  39. HUMALOG [Concomitant]
     Active Substance: INSULIN LISPRO
     Dosage: UNK
     Route: 058
  40. HUMALOG [Concomitant]
     Active Substance: INSULIN LISPRO
     Route: 058
  41. HUMALOG [Concomitant]
     Active Substance: INSULIN LISPRO
     Route: 058
  42. HUMALOG [Concomitant]
     Active Substance: INSULIN LISPRO
     Route: 058
  43. HUMALOG [Concomitant]
     Active Substance: INSULIN LISPRO
     Route: 058
  44. HUMALOG [Concomitant]
     Active Substance: INSULIN LISPRO
     Route: 058
  45. HUMALOG [Concomitant]
     Active Substance: INSULIN LISPRO
     Dosage: 16 DF, TID
     Route: 058
  46. HUMALOG [Concomitant]
     Active Substance: INSULIN LISPRO
     Route: 058
  47. LANSOPRAZOLE [Concomitant]
     Active Substance: LANSOPRAZOLE
     Indication: Product used for unknown indication
     Dosage: 30 MG, QD
     Route: 048
     Dates: start: 20150922, end: 20160122
  48. LEVEMIR [Concomitant]
     Active Substance: INSULIN DETEMIR
     Indication: Product used for unknown indication
     Dosage: 38 DF, QD
     Route: 058
  49. LEVEMIR [Concomitant]
     Active Substance: INSULIN DETEMIR
     Indication: Product used for unknown indication
  50. LOPERAMIDE [Concomitant]
     Active Substance: LOPERAMIDE
     Indication: Product used for unknown indication
     Dosage: 2 MG
     Route: 048
     Dates: start: 20150922, end: 20160122
  51. METFORMIN [Concomitant]
     Active Substance: METFORMIN HYDROCHLORIDE
     Indication: Product used for unknown indication
     Dosage: 1000 MG, QD
     Route: 048
  52. METFORMIN [Concomitant]
     Active Substance: METFORMIN HYDROCHLORIDE
     Dosage: 500 MG, BID
     Route: 048
  53. METFORMIN [Concomitant]
     Active Substance: METFORMIN HYDROCHLORIDE
     Dosage: 500 MG
     Route: 048
  54. ZOPICLONE [Concomitant]
     Active Substance: ZOPICLONE
     Indication: Insomnia
     Dosage: 3.75 MG, QD
     Route: 048
     Dates: start: 20170812, end: 20170822
  55. BUDESONIDE [Concomitant]
     Active Substance: BUDESONIDE
     Indication: Product used for unknown indication
     Dosage: 9 MG, QD
     Dates: start: 20180220
  56. DOCUSATE [Concomitant]
     Active Substance: DOCUSATE
  57. DOMPERIDONE [Concomitant]
     Active Substance: DOMPERIDONE
  58. GLYCERIN [Concomitant]
     Active Substance: GLYCERIN
     Indication: Product used for unknown indication
     Dosage: 4 G
     Route: 048
     Dates: start: 20180511
  59. HALOPERIDOL [Concomitant]
     Active Substance: HALOPERIDOL
  60. SCOPOLAMINE [Concomitant]
     Active Substance: SCOPOLAMINE
     Indication: Product used for unknown indication
     Dosage: 20 MG, QD
     Route: 065
     Dates: start: 20171219
  61. SCOPOLAMINE [Concomitant]
     Active Substance: SCOPOLAMINE
     Dosage: 20 MG
     Route: 065
     Dates: start: 20171219
  62. LACTULOSE [Concomitant]
     Active Substance: LACTULOSE
     Dosage: UNK
     Route: 065
  63. POLYETHYLENE GLYCOLS [Concomitant]
     Active Substance: POLYETHYLENE GLYCOLS
  64. OMEPRAZOLE [Concomitant]
     Active Substance: OMEPRAZOLE
  65. ONDANSETRON [Concomitant]
     Active Substance: ONDANSETRON
  66. RANITIDINE [Concomitant]
     Active Substance: RANITIDINE
  67. SENNOSIDE B [Concomitant]
     Active Substance: SENNOSIDE B
  68. DOCUSATE SODIUM [Concomitant]
     Active Substance: DOCUSATE SODIUM
  69. BUTYLSCOPOLAMINE [Concomitant]
     Active Substance: BUTYLSCOPOLAMINE
  70. BUTYLSCOPOLAMINE [Concomitant]
     Active Substance: BUTYLSCOPOLAMINE
     Dosage: 20 MG, QD
     Route: 065
     Dates: start: 20171219

REACTIONS (9)
  - Hyperglycaemia [Recovered/Resolved]
  - Constipation [Recovered/Resolved]
  - Neuropathy peripheral [Recovered/Resolved]
  - Upper respiratory tract infection [Recovered/Resolved]
  - Hot flush [Recovered/Resolved]
  - Cough [Recovered/Resolved]
  - Constipation [Recovered/Resolved]
  - Aphonia [Recovered/Resolved]
  - Off label use [Unknown]

NARRATIVE: CASE EVENT DATE: 20160301
